FAERS Safety Report 7824630-X (Version None)
Quarter: 2011Q4

REPORT INFORMATION
  Report Type: 
  Country: None (occurrence: None)
  Receive Date: 20111018
  Receipt Date: 20111018
  Transmission Date: 20120403
  Serious: Yes (Hospitalization)
  Sender: FDA-Public Use
  Company Number: None

PATIENT
  Age: 8 Year
  Sex: Female

DRUGS (5)
  1. GEODON [Concomitant]
  2. ZYPREXA [Concomitant]
  3. CLONIDINE [Concomitant]
  4. SEROQUEL [Suspect]
  5. COGENTIN [Concomitant]

REACTIONS (4)
  - SYDENHAM'S CHOREA [None]
  - TARDIVE DYSKINESIA [None]
  - STREPTOCOCCAL INFECTION [None]
  - WITHDRAWAL SYNDROME [None]
